FAERS Safety Report 25762406 (Version 1)
Quarter: 2025Q3

REPORT INFORMATION
  Report Type: Report from Study
  Country: US (occurrence: US)
  Receive Date: 20250904
  Receipt Date: 20250904
  Transmission Date: 20251021
  Serious: No
  Sender: MARINUS PHARMACEUTICALS
  Company Number: US-MARINUS PHARMACEUTICALS, INC.-MAR2025000194

PATIENT

DRUGS (1)
  1. GANAXOLONE [Suspect]
     Active Substance: GANAXOLONE
     Indication: Product used for unknown indication
     Route: 048

REACTIONS (2)
  - Product dose omission issue [Unknown]
  - Food refusal [Unknown]
